FAERS Safety Report 17611803 (Version 2)
Quarter: 2020Q3

REPORT INFORMATION
  Report Type: Spontaneous
  Country: US (occurrence: US)
  Receive Date: 20200401
  Receipt Date: 20200807
  Transmission Date: 20201102
  Serious: No
  Sender: FDA-Public Use
  Company Number: US-ELI_LILLY_AND_COMPANY-US202003005028

PATIENT
  Age: 57 Year
  Sex: Female

DRUGS (3)
  1. EMGALITY [Interacting]
     Active Substance: GALCANEZUMAB-GNLM
     Dosage: 1 UNK, MONTHLY (1/M)
     Route: 058
     Dates: end: 202002
  2. EMGALITY [Suspect]
     Active Substance: GALCANEZUMAB-GNLM
     Indication: MIGRAINE
     Dosage: UNK UNK, LOADING DOSE
     Route: 058
     Dates: start: 201911
  3. PREDNISONE. [Interacting]
     Active Substance: PREDNISONE
     Indication: SKIN IRRITATION
     Dosage: UNK, UNKNOWN
     Route: 065

REACTIONS (4)
  - Dermatitis [Recovering/Resolving]
  - Drug interaction [Unknown]
  - Fungal infection [Recovering/Resolving]
  - Skin abrasion [Unknown]

NARRATIVE: CASE EVENT DATE: 201907
